FAERS Safety Report 25647359 (Version 1)
Quarter: 2025Q3

REPORT INFORMATION
  Report Type: Spontaneous
  Country: CO (occurrence: CO)
  Receive Date: 20250806
  Receipt Date: 20250806
  Transmission Date: 20251021
  Serious: Yes (Other)
  Sender: UCB
  Company Number: CO-UCBSA-2025047453

PATIENT
  Age: 35 Year
  Sex: Male

DRUGS (1)
  1. BRIVARACETAM [Suspect]
     Active Substance: BRIVARACETAM
     Indication: Epilepsy
     Dates: end: 202412

REACTIONS (3)
  - Epilepsy [Unknown]
  - Insurance issue [Unknown]
  - Therapy interrupted [Unknown]
